FAERS Safety Report 25123627 (Version 1)
Quarter: 2025Q1

REPORT INFORMATION
  Report Type: Spontaneous
  Country: US (occurrence: US)
  Receive Date: 20250326
  Receipt Date: 20250326
  Transmission Date: 20250408
  Serious: No
  Sender: GRIFOLS
  Company Number: US-IGSA-BIG0029828

PATIENT
  Age: 64 Year
  Sex: Female
  Weight: 68.481 kg

DRUGS (18)
  1. PROLASTIN-C LIQUID [Suspect]
     Active Substance: .ALPHA.1-PROTEINASE INHIBITOR HUMAN
     Indication: Alpha-1 antitrypsin deficiency
     Dosage: 4304 MILLIGRAM, Q.WK.
     Route: 042
  2. PROLASTIN-C LIQUID [Suspect]
     Active Substance: .ALPHA.1-PROTEINASE INHIBITOR HUMAN
     Route: 042
     Dates: start: 20240724, end: 20240724
  3. PROLASTIN-C LIQUID [Suspect]
     Active Substance: .ALPHA.1-PROTEINASE INHIBITOR HUMAN
     Dosage: 4220 MILLIGRAM, Q.WK.
     Route: 042
  4. FLONASE ALLERGY RELIEF [Concomitant]
     Active Substance: FLUTICASONE PROPIONATE
  5. ALLOPURINOL [Concomitant]
     Active Substance: ALLOPURINOL
  6. LIDOCAINE [Concomitant]
     Active Substance: LIDOCAINE
  7. BUDESONIDE\FORMOTEROL FUMARATE [Concomitant]
     Active Substance: BUDESONIDE\FORMOTEROL FUMARATE
  8. COLCHICINE [Concomitant]
     Active Substance: COLCHICINE
  9. DULOXETINE HYDROCHLORIDE [Concomitant]
     Active Substance: DULOXETINE HYDROCHLORIDE
  10. DILTIAZEM [Concomitant]
     Active Substance: DILTIAZEM
  11. ALBUTEROL SULFATE [Concomitant]
     Active Substance: ALBUTEROL SULFATE
  12. WEGOVY [Concomitant]
     Active Substance: SEMAGLUTIDE
  13. CLONAZEPAM [Concomitant]
     Active Substance: CLONAZEPAM
  14. ALBUTEROL\IPRATROPIUM [Concomitant]
     Active Substance: ALBUTEROL\IPRATROPIUM
  15. HYDROCHLOROTHIAZIDE\OLMESARTAN MEDOXOMIL [Concomitant]
     Active Substance: HYDROCHLOROTHIAZIDE\OLMESARTAN MEDOXOMIL
  16. HEPARIN [Concomitant]
     Active Substance: HEPARIN SODIUM
  17. LIDOCAINE\PRILOCAINE [Concomitant]
     Active Substance: LIDOCAINE\PRILOCAINE
  18. SODIUM CHLORIDE [Concomitant]
     Active Substance: SODIUM CHLORIDE

REACTIONS (7)
  - Pain [Unknown]
  - Nausea [Unknown]
  - Exophthalmos [Unknown]
  - Back pain [Unknown]
  - Fatigue [Unknown]
  - Dyspnoea [Unknown]
  - Urinary tract infection [Unknown]

NARRATIVE: CASE EVENT DATE: 20240717
